FAERS Safety Report 25004571 (Version 1)
Quarter: 2025Q1

REPORT INFORMATION
  Report Type: Spontaneous
  Country: DE (occurrence: DE)
  Receive Date: 20250224
  Receipt Date: 20250224
  Transmission Date: 20250409
  Serious: Yes (Other)
  Sender: CELLTRION
  Company Number: DE-GLENMARK PHARMACEUTICALS-2024GMK093642

PATIENT

DRUGS (2)
  1. TRASTUZUMAB [Suspect]
     Active Substance: TRASTUZUMAB
     Indication: Metastatic salivary gland cancer
     Route: 065
  2. DOCETAXEL [Suspect]
     Active Substance: DOCETAXEL
     Indication: Metastatic salivary gland cancer
     Route: 065

REACTIONS (5)
  - Disease progression [Unknown]
  - Metastases to lung [Unknown]
  - Therapy partial responder [Unknown]
  - Off label use [Unknown]
  - Intentional product use issue [Unknown]
